FAERS Safety Report 4536893-7 (Version None)
Quarter: 2004Q4

REPORT INFORMATION
  Report Type: 
  Country: None (occurrence: None)
  Receive Date: 20041223
  Receipt Date: 20041214
  Transmission Date: 20050328
  Serious: Yes (Other)
  Sender: FDA-Public Use
  Company Number: 2004JP002181

PATIENT
  Age: 61 Year
  Sex: Male

DRUGS (1)
  1. CEFAMEZIN [Suspect]
     Indication: DRUG USE FOR UNKNOWN INDICATION
     Route: 042

REACTIONS (3)
  - BLOOD IMMUNOGLOBULIN E INCREASED [None]
  - DEPRESSED LEVEL OF CONSCIOUSNESS [None]
  - DERMATITIS EXFOLIATIVE [None]
